FAERS Safety Report 22009898 (Version 2)
Quarter: 2023Q1

REPORT INFORMATION
  Report Type: Spontaneous
  Country: US (occurrence: US)
  Receive Date: 20230220
  Receipt Date: 20230221
  Transmission Date: 20230418
  Serious: No
  Sender: FDA-Public Use
  Company Number: US-002147023-NVSC2023US038076

PATIENT
  Sex: Female

DRUGS (2)
  1. ZOMETA [Suspect]
     Active Substance: ZOLEDRONIC ACID
     Indication: Product used for unknown indication
     Dosage: UNK
     Route: 065
  2. IBRANCE [Suspect]
     Active Substance: PALBOCICLIB
     Indication: Product used for unknown indication
     Dosage: 1 DOSAGE FORM (TAKE 1 TABLET DAILY FOR 21 DAYS, FOLLOWED BY 7 DAYS OFF) (STOP DATE: ONGOING)
     Route: 065
     Dates: start: 20220818

REACTIONS (3)
  - Feeling abnormal [Unknown]
  - Hot flush [Unknown]
  - Influenza like illness [Recovered/Resolved]
